FAERS Safety Report 4807176-2 (Version None)
Quarter: 2005Q4

REPORT INFORMATION
  Report Type: 
  Country: None (occurrence: None)
  Receive Date: 20051024
  Receipt Date: 20051010
  Transmission Date: 20060501
  Serious: Yes (Death)
  Sender: FDA-Public Use
  Company Number: 2005SE05767

PATIENT
  Age: 27 Year
  Sex: Male
  Weight: 100 kg

DRUGS (8)
  1. SEROQUEL [Suspect]
     Indication: PSYCHOTIC DISORDER
     Route: 048
     Dates: start: 20040901, end: 20050501
  2. SEROQUEL [Suspect]
     Route: 048
     Dates: start: 20050501, end: 20050901
  3. SEROQUEL [Suspect]
     Route: 048
     Dates: start: 20050901
  4. TRANQUIRIT [Concomitant]
     Dates: start: 20040901, end: 20050901
  5. LARGACTIL [Concomitant]
     Dates: start: 20040901
  6. NOZINAN [Concomitant]
     Dates: start: 20040901
  7. ENTUMIN [Concomitant]
     Dates: start: 20040901, end: 20050401
  8. CLONAZEPAM [Concomitant]
     Dates: start: 20050401

REACTIONS (5)
  - ALCOHOLISM [None]
  - AORTA HYPOPLASIA [None]
  - CARDIAC ARREST [None]
  - DRUG ABUSER [None]
  - PRESCRIBED OVERDOSE [None]
